FAERS Safety Report 24747876 (Version 1)
Quarter: 2024Q4

REPORT INFORMATION
  Report Type: Spontaneous
  Country: GB (occurrence: GB)
  Receive Date: 20241218
  Receipt Date: 20241218
  Transmission Date: 20250115
  Serious: Yes (Other)
  Sender: ARGENX BVBA
  Company Number: GB-ARGENX-2024-ARGX-GB011371

PATIENT

DRUGS (1)
  1. EFGARTIGIMOD ALFA [Suspect]
     Active Substance: EFGARTIGIMOD ALFA
     Indication: Myasthenia gravis
     Dosage: UNK, 1/WEEK (4 INFUSIONS AT WEEKLY INTERVALS WITH FURTHER CYCLES GIVEN ACCORDING TO CLINICAL NEED)
     Route: 042

REACTIONS (1)
  - Hypokalaemia [Unknown]
